FAERS Safety Report 11791461 (Version 1)
Quarter: 2015Q4

REPORT INFORMATION
  Report Type: Spontaneous
  Country: JP (occurrence: JP)
  Receive Date: 20151201
  Receipt Date: 20151201
  Transmission Date: 20160305
  Serious: Yes (Hospitalization)
  Sender: FDA-Public Use
  Company Number: JP-JNJFOC-20151126000

PATIENT
  Age: 70 Year
  Sex: Female
  Weight: 52 kg

DRUGS (14)
  1. ARASENA A [Suspect]
     Active Substance: VIDARABINE
     Indication: HERPES ZOSTER
     Dosage: 1 PER 1 DAY
     Route: 041
     Dates: start: 20151015, end: 20151019
  2. TRYTHMEN [Concomitant]
     Indication: PRODUCT USED FOR UNKNOWN INDICATION
     Dosage: 1 PER 1 DAY (AFTER BREAKFAST)
     Route: 048
  3. GOREISAN [Concomitant]
     Active Substance: HERBALS
     Indication: PRODUCT USED FOR UNKNOWN INDICATION
     Dosage: 3 PER 1 DAY (AFTER EACH MEAL )
     Route: 048
  4. PROCHLORPERAZINE MALEATE. [Concomitant]
     Active Substance: PROCHLORPERAZINE MALEATE
     Indication: PRODUCT USED FOR UNKNOWN INDICATION
     Dosage: 2 PER 1 DAY (RIGHT AFTER WAKING UP, BEFORE BEDTIME)
     Route: 048
  5. CILNIDIPINE [Concomitant]
     Active Substance: CILNIDIPINE
     Indication: PRODUCT USED FOR UNKNOWN INDICATION
     Dosage: 1 PER 1 DAY ( AFTER SUPPER )
     Route: 048
  6. METHYCOBAL [Concomitant]
     Active Substance: METHYLCOBALAMIN
     Indication: PRODUCT USED FOR UNKNOWN INDICATION
     Dosage: 3 PER 1 DAY (AFTER EACH MEAL )
     Route: 048
  7. EPINASTINE HYDROCHLORIDE. [Concomitant]
     Active Substance: EPINASTINE HYDROCHLORIDE
     Indication: PRODUCT USED FOR UNKNOWN INDICATION
     Dosage: 1 PER 1 DAY (AFTER SUPPER)
     Route: 048
  8. SODIUM RABEPRAZOLE [Concomitant]
     Active Substance: RABEPRAZOLE SODIUM
     Indication: PRODUCT USED FOR UNKNOWN INDICATION
     Dosage: 1 PER 1 DAY ( AFTER BREAKFAST )
     Route: 048
  9. ATORVASTATIN CALCIUM. [Concomitant]
     Active Substance: ATORVASTATIN CALCIUM
     Indication: PRODUCT USED FOR UNKNOWN INDICATION
     Dosage: 1 PER 1 DAY ( AFTER BREAKFAST )
     Route: 048
  10. FUROSEMIDE. [Concomitant]
     Active Substance: FUROSEMIDE
     Indication: PRODUCT USED FOR UNKNOWN INDICATION
     Dosage: 1 PER 1 DAY ( AFTER BREAKFAST )
     Route: 048
  11. CALONAL [Concomitant]
     Active Substance: ACETAMINOPHEN
     Indication: PRODUCT USED FOR UNKNOWN INDICATION
     Dosage: 3 PER 1 DAY (AFTER BREAKFAST, AFTER LUNCH, AFTER SUPPER)
     Route: 048
  12. TRAMCET [Suspect]
     Active Substance: ACETAMINOPHEN\TRAMADOL
     Indication: PRODUCT USED FOR UNKNOWN INDICATION
     Dosage: 2 PER 1 DAY; RIGHT AFTER WAKING UP, BEFORE BEDTIME
     Route: 048
  13. FEBURIC [Concomitant]
     Active Substance: FEBUXOSTAT
     Indication: PRODUCT USED FOR UNKNOWN INDICATION
     Dosage: 1 PER 1 DAY ( AFTER BREAKFAST )
     Route: 048
  14. SODIUM BICARBONATE. [Concomitant]
     Active Substance: SODIUM BICARBONATE
     Indication: PRODUCT USED FOR UNKNOWN INDICATION
     Dosage: 2 PER 1 DAY ( AFTER BREAKFAST, AFTER SUPPER )
     Route: 048

REACTIONS (1)
  - Toxic encephalopathy [Recovered/Resolved]

NARRATIVE: CASE EVENT DATE: 20151021
